FAERS Safety Report 9533058 (Version 1)
Quarter: 2013Q3

REPORT INFORMATION
  Report Type: Spontaneous
  Country: US (occurrence: US)
  Receive Date: 20130918
  Receipt Date: 20130918
  Transmission Date: 20140515
  Serious: No
  Sender: FDA-Public Use
  Company Number: US-PURDUE-USA-2011-0076597

PATIENT
  Sex: Female

DRUGS (3)
  1. BUTRANS [Suspect]
     Indication: PAIN
     Dosage: 10 MCG, Q1H
     Route: 062
  2. BUTRANS [Suspect]
     Dosage: 20 MCG, UNK
     Route: 062
  3. NORCO [Concomitant]
     Indication: BREAKTHROUGH PAIN
     Dosage: UNK

REACTIONS (3)
  - Inadequate analgesia [Unknown]
  - Breakthrough pain [Unknown]
  - Sedation [Unknown]
